FAERS Safety Report 7879525-2 (Version None)
Quarter: 2011Q4

REPORT INFORMATION
  Report Type: 
  Country: None (occurrence: None)
  Receive Date: 20111101
  Receipt Date: 20111019
  Transmission Date: 20120403
  Serious: Yes (Hospitalization)
  Sender: FDA-Public Use
  Company Number: US-GLAXOSMITHKLINE-A0768733A

PATIENT
  Age: 67 Year
  Sex: Female
  Weight: 76.8 kg

DRUGS (7)
  1. SIMVASTATIN [Concomitant]
  2. GLYBURIDE [Concomitant]
  3. LISINOPRIL [Concomitant]
  4. LANTUS [Concomitant]
     Dates: start: 20020101
  5. TRICOR [Concomitant]
  6. METFORMIN HCL [Concomitant]
     Dates: start: 20040101, end: 20080802
  7. AVANDIA [Suspect]
     Indication: TYPE 2 DIABETES MELLITUS
     Dosage: 8MG PER DAY
     Route: 065
     Dates: start: 20040101, end: 20080802

REACTIONS (3)
  - ANGINA UNSTABLE [None]
  - ACUTE MYOCARDIAL INFARCTION [None]
  - CORONARY ARTERY DISEASE [None]
